FAERS Safety Report 13190797 (Version 2)
Quarter: 2018Q1

REPORT INFORMATION
  Report Type: Spontaneous
  Country: FR (occurrence: FR)
  Receive Date: 20170206
  Receipt Date: 20180207
  Transmission Date: 20180508
  Serious: Yes (Hospitalization, Other)
  Sender: FDA-Public Use
  Company Number: FR-ASTRAZENECA-2017SE12706

PATIENT
  Age: 21882 Day
  Sex: Male
  Weight: 61 kg

DRUGS (9)
  1. LEVOFLOXACIN. [Suspect]
     Active Substance: LEVOFLOXACIN
     Indication: ANTIBIOTIC PROPHYLAXIS
     Dosage: 1.0DF UNKNOWN
     Route: 048
     Dates: start: 20170112, end: 20170113
  2. COLCHICINE. [Suspect]
     Active Substance: COLCHICINE
     Indication: BEHCET^S SYNDROME
     Dosage: 1.0MG UNKNOWN
     Route: 048
     Dates: start: 20170112, end: 20170113
  3. INEXIUM [Suspect]
     Active Substance: ESOMEPRAZOLE
     Route: 048
  4. PARACETAMOL [Suspect]
     Active Substance: ACETAMINOPHEN
     Dosage: 4 G, DOSING UNKNOWN
     Route: 042
     Dates: end: 20170111
  5. LOVENOX [Suspect]
     Active Substance: ENOXAPARIN SODIUM
     Dosage: UNKNOWN
     Route: 065
  6. PYOSTACINE [Suspect]
     Active Substance: PRISTINAMYCIN
     Dosage: UNKNOWN
     Route: 048
     Dates: end: 20170111
  7. ACTISKENAN [Suspect]
     Active Substance: MORPHINE SULFATE
     Dosage: 60.0MG UNKNOWN
     Route: 048
  8. ACUPAN [Suspect]
     Active Substance: NEFOPAM HYDROCHLORIDE
     Dosage: UNKNOWN80.0MG UNKNOWN
     Route: 065
  9. LEVOCARNIL [Suspect]
     Active Substance: LEVOCARNITINE
     Dosage: UNKNOWN
     Route: 048
     Dates: start: 20170112

REACTIONS (12)
  - Pulmonary contusion [Unknown]
  - Costochondral separation [Unknown]
  - Transaminases increased [Recovered/Resolved]
  - Cholestasis [Recovered/Resolved]
  - Hepatocellular injury [Recovered/Resolved]
  - Road traffic accident [Unknown]
  - Gamma-glutamyltransferase increased [Recovered/Resolved]
  - Cervical vertebral fracture [Unknown]
  - Lumbar vertebral fracture [Unknown]
  - Mediastinal haemorrhage [Unknown]
  - Blood alkaline phosphatase increased [Recovered/Resolved]
  - Blood bilirubin increased [Recovered/Resolved]

NARRATIVE: CASE EVENT DATE: 20170113
